FAERS Safety Report 10019114 (Version 1)
Quarter: 2014Q1

REPORT INFORMATION
  Report Type: Spontaneous
  Country: US (occurrence: None)
  Receive Date: 20140314
  Receipt Date: 20140314
  Transmission Date: 20141002
  Serious: Yes (Other)
  Sender: FDA-Public Use
  Company Number: None

PATIENT
  Age: 52 Year
  Sex: Female
  Weight: 68 kg

DRUGS (1)
  1. OFIRMEV [Suspect]
     Indication: PROCEDURAL PAIN
     Route: 042
     Dates: start: 20140303, end: 20140304

REACTIONS (5)
  - Chest discomfort [None]
  - Dyspnoea [None]
  - Chest discomfort [None]
  - Flushing [None]
  - Erythema [None]
